FAERS Safety Report 13082260 (Version 1)
Quarter: 2017Q1

REPORT INFORMATION
  Report Type: Spontaneous
  Country: FR (occurrence: FR)
  Receive Date: 20170103
  Receipt Date: 20170103
  Transmission Date: 20170428
  Serious: Yes (Hospitalization)
  Sender: FDA-Public Use
  Company Number: FR-BEH-2017076773

PATIENT
  Age: 80 Year
  Sex: Female

DRUGS (8)
  1. HYDROXYZINE HYDROCHLORIDE. [Concomitant]
     Active Substance: HYDROXYZINE HYDROCHLORIDE
     Route: 065
  2. PRIVIGEN [Suspect]
     Active Substance: HUMAN IMMUNOGLOBULIN G
     Indication: COMBINED IMMUNODEFICIENCY
     Dosage: 20 G, TOT, 1 IN 1 SINGLE DOSE
     Route: 042
     Dates: start: 20161207, end: 20161207
  3. CORDARONE [Concomitant]
     Active Substance: AMIODARONE HYDROCHLORIDE
     Dosage: 200 MG, UNK
     Route: 065
  4. PRIVIGEN [Suspect]
     Active Substance: HUMAN IMMUNOGLOBULIN G
     Indication: PLASMA CELL MYELOMA
     Dosage: 30 G, TOT
     Route: 042
     Dates: start: 20161108
  5. POMALIDOMIDE [Concomitant]
     Active Substance: POMALIDOMIDE
     Route: 065
  6. PRIVIGEN [Suspect]
     Active Substance: HUMAN IMMUNOGLOBULIN G
     Indication: IMMUNODEFICIENCY
  7. LEVOTHYROX [Concomitant]
     Active Substance: LEVOTHYROXINE
     Dosage: 175 ?G, UNK
     Route: 065
  8. COUMADINE [Concomitant]
     Active Substance: WARFARIN SODIUM
     Dosage: 2 MG, UNK
     Route: 065

REACTIONS (5)
  - Pyrexia [Recovered/Resolved]
  - Hyperthermia [Recovered/Resolved]
  - Chills [Recovered/Resolved]
  - Hypertension [Recovered/Resolved]
  - Blood pressure increased [Recovered/Resolved]

NARRATIVE: CASE EVENT DATE: 20161207
